FAERS Safety Report 8185520-9 (Version None)
Quarter: 2012Q1

REPORT INFORMATION
  Report Type: 
  Country: None (occurrence: None)
  Receive Date: 20120305
  Receipt Date: 20120227
  Transmission Date: 20120608
  Serious: Yes (Hospitalization, Other)
  Sender: FDA-Public Use
  Company Number: US-PFIZER INC-2012052649

PATIENT
  Sex: Male

DRUGS (2)
  1. DILANTIN-125 [Suspect]
     Indication: CONVULSION
     Dosage: UNK
  2. PHENYTOIN [Suspect]
     Indication: CONVULSION
     Dosage: UNK

REACTIONS (4)
  - DYSPNOEA [None]
  - EPISTAXIS [None]
  - LOSS OF CONSCIOUSNESS [None]
  - HAEMORRHAGE [None]
